FAERS Safety Report 9970860 (Version 1)
Quarter: 2014Q1

REPORT INFORMATION
  Report Type: Spontaneous
  Country: US (occurrence: None)
  Receive Date: 20140305
  Receipt Date: 20140305
  Transmission Date: 20141002
  Serious: Yes (Other)
  Sender: FDA-Public Use
  Company Number: None

PATIENT
  Age: 52 Year
  Sex: Female
  Weight: 56.7 kg

DRUGS (1)
  1. ALENDRONATE [Suspect]
     Dosage: 4 PILLS, 1 WEEKLY
     Route: 048
     Dates: start: 20140224, end: 20140302

REACTIONS (8)
  - Nausea [None]
  - Stress [None]
  - Balance disorder [None]
  - Blood glucose decreased [None]
  - Loss of consciousness [None]
  - Arthralgia [None]
  - Bone pain [None]
  - Gait disturbance [None]
